FAERS Safety Report 4266177-6 (Version None)
Quarter: 2004Q1

REPORT INFORMATION
  Report Type: 
  Country: None (occurrence: None)
  Receive Date: 20040106
  Receipt Date: 20031017
  Transmission Date: 20041129
  Serious: Yes (Death)
  Sender: FDA-Public Use
  Company Number: USA-2003-0010533

PATIENT
  Age: 45 Year
  Sex: Male
  Weight: 82.5 kg

DRUGS (10)
  1. MORPHINE SULFATE [Suspect]
  2. HYDROCODONE BITARTRATE [Suspect]
  3. ACETAMINOPHEN [Suspect]
  4. OXAZEPAM [Suspect]
  5. TEMAZEPAM [Concomitant]
  6. CARISOPRODOL [Concomitant]
  7. MEPROBAMATE [Suspect]
  8. DIAZEPAM [Suspect]
  9. LORAZEPAM [Suspect]
  10. CODEINE (CODEINE) [Suspect]

REACTIONS (5)
  - CORONARY ARTERY ATHEROSCLEROSIS [None]
  - DRUG SCREEN POSITIVE [None]
  - ENDOCARDIAL FIBROSIS [None]
  - PULMONARY CONGESTION [None]
  - PULMONARY OEDEMA [None]
